FAERS Safety Report 24686908 (Version 1)
Quarter: 2024Q4

REPORT INFORMATION
  Report Type: Spontaneous
  Country: FR (occurrence: FR)
  Receive Date: 20241202
  Receipt Date: 20241202
  Transmission Date: 20250114
  Serious: Yes (Other)
  Sender: JOHNSON AND JOHNSON
  Company Number: FR-MYLANLABS-2024M1098695

PATIENT
  Age: 73 Year
  Sex: Female

DRUGS (1)
  1. RISPERIDONE [Suspect]
     Active Substance: RISPERIDONE
     Indication: Product used for unknown indication
     Route: 065

REACTIONS (8)
  - General physical health deterioration [Unknown]
  - Intellectual disability [Unknown]
  - Dysstasia [Unknown]
  - Speech disorder [Unknown]
  - Aphasia [Unknown]
  - Epistaxis [Unknown]
  - Nasal congestion [Unknown]
  - Pain [Unknown]

NARRATIVE: CASE EVENT DATE: 20210101
